FAERS Safety Report 7105475-5 (Version None)
Quarter: 2010Q4

REPORT INFORMATION
  Report Type: 
  Country: None (occurrence: None)
  Receive Date: 20101116
  Receipt Date: 20101110
  Transmission Date: 20110411
  Serious: Yes (Hospitalization, Other)
  Sender: FDA-Public Use
  Company Number: PT-ROXANE LABORATORIES, INC.-2010-RO-01487RO

PATIENT
  Age: 63 Year
  Sex: Male

DRUGS (5)
  1. MYCOPHENOLATE MOFETIL [Suspect]
     Indication: RENAL TRANSPLANT
     Dosage: 1000 MG
     Route: 048
  2. FUROSEMIDE [Suspect]
     Indication: RENAL TRANSPLANT
     Dosage: 40 MG
     Route: 048
  3. TACROLIMUS [Suspect]
     Indication: RENAL TRANSPLANT
     Dosage: 2 MG
     Route: 048
  4. PREDNISOLONE [Suspect]
     Indication: RENAL TRANSPLANT
     Dosage: 5 MG
     Route: 048
  5. VORICONAZOLE [Suspect]
     Indication: FUNGAL SKIN INFECTION
     Dosage: 400 MG
     Route: 048

REACTIONS (2)
  - FUNGAL SKIN INFECTION [None]
  - VISUAL IMPAIRMENT [None]
